FAERS Safety Report 6099165-8 (Version None)
Quarter: 2009Q1

REPORT INFORMATION
  Report Type: 
  Country: None (occurrence: None)
  Receive Date: 20090302
  Receipt Date: 20090225
  Transmission Date: 20090719
  Serious: Yes (Hospitalization)
  Sender: FDA-Public Use
  Company Number: US-ABBOTT-09P-163-0559235-00

PATIENT
  Sex: Female
  Weight: 54.48 kg

DRUGS (9)
  1. HUMIRA [Suspect]
     Indication: CROHN'S DISEASE
     Dosage: LOADING DOSE (4 PENS)STARTED IN LATE JUN 2008
     Route: 058
     Dates: start: 20080601, end: 20081101
  2. HUMIRA [Suspect]
     Dosage: RESTARTED LOADING DOSE, 4 PENS
     Route: 058
     Dates: start: 20090201
  3. AUGMENTIN [Concomitant]
     Indication: ABSCESS
     Dosage: TAKES PRIOR  TO INJECTIONS FOR PREVENTION
     Route: 048
     Dates: start: 20090101
  4. PENTESA [Concomitant]
     Indication: CROHN'S DISEASE
  5. PENTESA RECTAL [Concomitant]
     Indication: CROHN'S DISEASE
  6. NORTRIPTYLINE HCL [Concomitant]
     Indication: DEPRESSION
     Route: 048
  7. HYDROCODONE [Concomitant]
     Indication: PAIN
     Route: 048
  8. IRON [Concomitant]
     Indication: ANAEMIA
     Route: 048
  9. MULTI-VITAMIN [Concomitant]
     Indication: DRUG USE FOR UNKNOWN INDICATION
     Route: 048

REACTIONS (6)
  - ABSCESS [None]
  - DRUG INEFFECTIVE [None]
  - FISTULA [None]
  - GASTRIC INFECTION [None]
  - GASTROINTESTINAL INFECTION [None]
  - WEIGHT DECREASED [None]
